FAERS Safety Report 4658534-0 (Version None)
Quarter: 2005Q2

REPORT INFORMATION
  Report Type: 
  Country: None (occurrence: None)
  Receive Date: 20050509
  Receipt Date: 20050427
  Transmission Date: 20051028
  Serious: Yes (Other)
  Sender: FDA-Public Use
  Company Number: 2005067525

PATIENT
  Age: 71 Year
  Sex: Male
  Weight: 76.2043 kg

DRUGS (8)
  1. NARDIL [Suspect]
     Indication: ANXIETY
     Dosage: (3 IN 1 D)
     Dates: start: 19750101
  2. LEVOTHYROXINE SODIUM [Suspect]
     Indication: HYPOTHYROIDISM
  3. NITROGLYCERIN [Concomitant]
  4. ISOSORBIDE MONONITRATE [Concomitant]
  5. DOCUSATE SODIUM (DOCUSATE SODIUM) [Concomitant]
  6. FLURAZEPAM HYDROCHLORIDE (FLURAZEPAM HYDROCHLORIDE) [Concomitant]
  7. SULFUR (SULFUR) [Concomitant]
  8. LAXATIVES (LAXATIVES) [Concomitant]

REACTIONS (4)
  - ANXIETY [None]
  - CHEST DISCOMFORT [None]
  - FEELING COLD [None]
  - STENT PLACEMENT [None]
